FAERS Safety Report 23905025 (Version 1)
Quarter: 2024Q2

REPORT INFORMATION
  Report Type: Report from Study
  Country: DK (occurrence: DK)
  Receive Date: 20240527
  Receipt Date: 20240527
  Transmission Date: 20240716
  Serious: Yes (Other)
  Sender: FDA-Public Use
  Company Number: DK-JNJFOC-20240561180

PATIENT

DRUGS (2)
  1. REMICADE [Suspect]
     Active Substance: INFLIXIMAB
     Indication: Colitis ulcerative
     Route: 041
  2. PREDNISOLONE [Suspect]
     Active Substance: PREDNISOLONE

REACTIONS (9)
  - Clostridium difficile infection [Unknown]
  - Anaphylactic reaction [Unknown]
  - Neoplasm malignant [Unknown]
  - Sinusitis [Unknown]
  - Herpes zoster reactivation [Unknown]
  - Staphylococcal skin infection [Unknown]
  - Alanine aminotransferase increased [Unknown]
  - Gastrointestinal infection [Unknown]
  - Exposure during pregnancy [Unknown]
